FAERS Safety Report 7000338-8 (Version None)
Quarter: 2010Q3

REPORT INFORMATION
  Report Type: 
  Country: None (occurrence: None)
  Receive Date: 20100920
  Receipt Date: 20100818
  Transmission Date: 20110219
  Serious: No
  Sender: FDA-Public Use
  Company Number: US-BAYER-201019200BCC

PATIENT
  Age: 63 Year
  Sex: Female

DRUGS (1)
  1. FINACEA [Suspect]
     Indication: ROSACEA
     Dosage: BOTTLE COUNT UNKNOWN
     Route: 061
     Dates: start: 20060101

REACTIONS (2)
  - BURNING SENSATION [None]
  - ERYTHEMA [None]
